FAERS Safety Report 11333795 (Version 1)
Quarter: 2015Q3

REPORT INFORMATION
  Report Type: Spontaneous
  Country: US (occurrence: US)
  Receive Date: 20150803
  Receipt Date: 20150803
  Transmission Date: 20151125
  Serious: No
  Sender: FDA-Public Use
  Company Number: US-ELI_LILLY_AND_COMPANY-US200812003767

PATIENT
  Age: 18 Year
  Sex: Female

DRUGS (2)
  1. ZYPREXA [Suspect]
     Active Substance: OLANZAPINE
     Indication: AGITATED DEPRESSION
     Dosage: 2.5 MG, DAILY (1/D)
     Dates: start: 200809, end: 200812
  2. ZOLOFT [Concomitant]
     Active Substance: SERTRALINE HYDROCHLORIDE
     Indication: DEPRESSION

REACTIONS (7)
  - Asthenia [Unknown]
  - Weight increased [Unknown]
  - Headache [Unknown]
  - Motion sickness [Unknown]
  - Withdrawal syndrome [Unknown]
  - Nausea [Unknown]
  - Dizziness [Unknown]
